FAERS Safety Report 25701140 (Version 3)
Quarter: 2025Q4

REPORT INFORMATION
  Report Type: Spontaneous
  Country: US (occurrence: US)
  Receive Date: 20250819
  Receipt Date: 20251017
  Transmission Date: 20260118
  Serious: Yes (Hospitalization, Other)
  Sender: BLUEPRINT MEDICINES
  Company Number: US-Blueprint Medicines Corporation-2025-AER-01798

PATIENT
  Age: 56 Year
  Sex: Female

DRUGS (2)
  1. AYVAKIT [Suspect]
     Active Substance: AVAPRITINIB
     Indication: Systemic mastocytosis
     Route: 065
     Dates: start: 20250606
  2. AYVAKIT [Suspect]
     Active Substance: AVAPRITINIB
     Route: 065
     Dates: start: 20250606

REACTIONS (15)
  - Visual impairment [Recovering/Resolving]
  - Hordeolum [Recovering/Resolving]
  - Eye swelling [Recovering/Resolving]
  - Hypersensitivity [Recovered/Resolved]
  - Blood lactic acid increased [Recovered/Resolved]
  - Steroid withdrawal syndrome [Unknown]
  - Hyperglycaemia [Unknown]
  - Abdominal pain [Unknown]
  - Swelling [Unknown]
  - Cortisol decreased [Unknown]
  - Ear infection [Unknown]
  - Ear pain [Unknown]
  - Blood potassium decreased [Unknown]
  - Blood thyroid stimulating hormone increased [Unknown]
  - Depressed mood [Unknown]

NARRATIVE: CASE EVENT DATE: 20250701
